FAERS Safety Report 4362282-4 (Version None)
Quarter: 2004Q2

REPORT INFORMATION
  Report Type: 
  Country: None (occurrence: None)
  Receive Date: 20040517
  Receipt Date: 20040507
  Transmission Date: 20050107
  Serious: Yes (Death, Other)
  Sender: FDA-Public Use
  Company Number: US-JNJFOC-20040103201

PATIENT
  Age: 84 Year
  Sex: Female

DRUGS (6)
  1. INFLIXIMAB (INFLIXIMAB, RECOMBINANT) LYOPHILIZED POWDER [Suspect]
     Indication: RHEUMATOID ARTHRITIS
     Dosage: INTRAVENOUS
     Route: 042
     Dates: start: 20011201, end: 20021101
  2. PREDNISONE [Concomitant]
  3. VERAPAMIL [Concomitant]
  4. CALCIUM + D (VALCIUM ) [Concomitant]
  5. SINGULAIR [Concomitant]
  6. FOLIC ACID [Concomitant]

REACTIONS (2)
  - CELLULITIS [None]
  - PNEUMONIA [None]
